FAERS Safety Report 17261312 (Version 2)
Quarter: 2020Q1

REPORT INFORMATION
  Report Type: Report from Study
  Country: US (occurrence: US)
  Receive Date: 20200113
  Receipt Date: 20200207
  Transmission Date: 20200409
  Serious: Yes (Death, Hospitalization, Other)
  Sender: FDA-Public Use
  Company Number: US-EMD SERONO-9120126

PATIENT
  Age: 69 Year
  Sex: Female

DRUGS (4)
  1. REBIF [Suspect]
     Active Substance: INTERFERON BETA-1A
     Indication: MULTIPLE SCLEROSIS
     Route: 058
     Dates: start: 20071119
  2. SIMVASTATIN. [Concomitant]
     Active Substance: SIMVASTATIN
     Indication: BLOOD CHOLESTEROL INCREASED
     Dosage: DAILY
  3. ADDERALL [Concomitant]
     Active Substance: AMPHETAMINE ASPARTATE\AMPHETAMINE SULFATE\DEXTROAMPHETAMINE SACCHARATE\DEXTROAMPHETAMINE SULFATE
     Indication: HYPERSOMNIA
     Dosage: DAILY
     Route: 048
  4. METOPROLOL. [Concomitant]
     Active Substance: METOPROLOL
     Indication: HYPERTENSION

REACTIONS (17)
  - Acute kidney injury [Unknown]
  - Hypokalaemia [Unknown]
  - Disorientation [Recovering/Resolving]
  - Asthenia [Not Recovered/Not Resolved]
  - Intestinal ischaemia [Fatal]
  - Multiple sclerosis [Unknown]
  - Fall [Unknown]
  - Metabolic encephalopathy [Unknown]
  - Urinary tract infection [Recovering/Resolving]
  - Contusion [Unknown]
  - Lung neoplasm malignant [Unknown]
  - Malaise [Unknown]
  - Hypokinesia [Not Recovered/Not Resolved]
  - Liver function test increased [Unknown]
  - Electrolyte imbalance [Unknown]
  - Pulmonary mass [Unknown]
  - Septic shock [Fatal]

NARRATIVE: CASE EVENT DATE: 201909
